FAERS Safety Report 20660235 (Version 1)
Quarter: 2022Q1

REPORT INFORMATION
  Report Type: Spontaneous
  Country: GB (occurrence: GB)
  Receive Date: 20220331
  Receipt Date: 20220331
  Transmission Date: 20220423
  Serious: Yes (Disabling)
  Sender: FDA-Public Use
  Company Number: None

PATIENT
  Age: 68 Year
  Sex: Male
  Weight: 94 kg

DRUGS (16)
  1. ALOGLIPTIN [Suspect]
     Active Substance: ALOGLIPTIN
     Indication: Ill-defined disorder
     Dosage: UNK
     Route: 065
     Dates: start: 20220223
  2. ALOGLIPTIN [Suspect]
     Active Substance: ALOGLIPTIN
     Dosage: 6.25 MILLIGRAM, QD
     Route: 065
     Dates: start: 20211115
  3. ALOGLIPTIN [Concomitant]
     Active Substance: ALOGLIPTIN
     Indication: Ill-defined disorder
     Dosage: UNK UNK, QD
     Dates: start: 20211115, end: 20220223
  4. ASPIRIN [Concomitant]
     Active Substance: ASPIRIN
     Indication: Ill-defined disorder
     Dosage: UNK UNK, QD
     Dates: start: 20210129
  5. ATORVASTATIN [Concomitant]
     Active Substance: ATORVASTATIN
     Indication: Ill-defined disorder
     Dosage: UNK UNK, QD
     Dates: start: 20210129
  6. BISOPROLOL [Concomitant]
     Active Substance: BISOPROLOL
     Indication: Ill-defined disorder
     Dosage: UNK UNK, QD
     Dates: start: 20210129
  7. BECLOMETHASONE DIPROPIONATE [Concomitant]
     Active Substance: BECLOMETHASONE DIPROPIONATE
     Indication: Ill-defined disorder
     Dosage: UNK UNK, BID
     Route: 055
     Dates: start: 20210129
  8. FLUTICASONE PROPIONATE [Concomitant]
     Active Substance: FLUTICASONE PROPIONATE
     Indication: Ill-defined disorder
     Dosage: UNK UNK, QD
     Route: 055
     Dates: start: 20210129
  9. LANSOPRAZOLE [Concomitant]
     Active Substance: LANSOPRAZOLE
     Indication: Ill-defined disorder
     Dosage: UNK UNK, QD
     Dates: start: 20210129
  10. LORATADINE [Concomitant]
     Active Substance: LORATADINE
     Indication: Ill-defined disorder
     Dosage: UNK UNK, QD
     Dates: start: 20210129
  11. ACETAMINOPHEN [Concomitant]
     Active Substance: ACETAMINOPHEN
     Indication: Ill-defined disorder
     Dosage: UNK UNK, QID
     Dates: start: 20210129
  12. RAMIPRIL [Concomitant]
     Active Substance: RAMIPRIL
     Indication: Ill-defined disorder
     Dosage: UNK UNK, QD
     Dates: start: 20210129
  13. REPAGLINIDE [Concomitant]
     Active Substance: REPAGLINIDE
     Indication: Ill-defined disorder
     Dosage: UNK
     Dates: start: 20210129
  14. ALBUTEROL [Concomitant]
     Active Substance: ALBUTEROL
     Indication: Ill-defined disorder
     Dosage: UNK UNK, QID
     Dates: start: 20210129
  15. SALMETEROL [Concomitant]
     Active Substance: SALMETEROL
     Indication: Ill-defined disorder
     Dosage: UNK UNK, BID
     Route: 055
     Dates: start: 20210129
  16. SILDENAFIL [Concomitant]
     Active Substance: SILDENAFIL
     Indication: Ill-defined disorder
     Dosage: UNK UNK, QD
     Dates: start: 20210129

REACTIONS (2)
  - Diarrhoea [Recovered/Resolved]
  - Nausea [Unknown]

NARRATIVE: CASE EVENT DATE: 20220223
